FAERS Safety Report 6863942-3 (Version None)
Quarter: 2010Q3

REPORT INFORMATION
  Report Type: 
  Country: None (occurrence: None)
  Receive Date: 20100721
  Receipt Date: 20080509
  Transmission Date: 20110219
  Serious: No
  Sender: FDA-Public Use
  Company Number: US-PFIZER INC-2008021970

PATIENT
  Sex: Female
  Weight: 61.2 kg

DRUGS (6)
  1. CHANTIX [Suspect]
     Indication: SMOKING CESSATION THERAPY
     Route: 048
     Dates: start: 20080101, end: 20080301
  2. TIOTROPIUM BROMIDE [Concomitant]
     Indication: EMPHYSEMA
  3. ALBUTEROL [Concomitant]
  4. VALSARTAN [Concomitant]
  5. SPIRIVA [Concomitant]
  6. MULTI-VITAMINS [Concomitant]

REACTIONS (4)
  - ABDOMINAL PAIN [None]
  - CHEST PAIN [None]
  - DRUG INEFFECTIVE [None]
  - MALAISE [None]
